FAERS Safety Report 5294072-2 (Version None)
Quarter: 2007Q2

REPORT INFORMATION
  Report Type: 
  Country: None (occurrence: None)
  Receive Date: 20070406
  Receipt Date: 20070326
  Transmission Date: 20071010
  Serious: Yes (Other)
  Sender: FDA-Public Use
  Company Number: 34125

PATIENT
  Age: 62 Year
  Sex: Male
  Weight: 128 kg

DRUGS (2)
  1. POLYMYXIN B FOR INJ. 500,000 UNITS - BEDFORD LABS, INC. [Suspect]
     Dosage: 3,000,000 UNITS; IV
     Route: 042
     Dates: start: 20070202
  2. CELL SAVER [Concomitant]

REACTIONS (3)
  - INCORRECT ROUTE OF DRUG ADMINISTRATION [None]
  - OVERDOSE [None]
  - PROCEDURAL COMPLICATION [None]
